FAERS Safety Report 16178564 (Version 2)
Quarter: 2019Q2

REPORT INFORMATION
  Report Type: Report from Study
  Country: KR (occurrence: KR)
  Receive Date: 20190410
  Receipt Date: 20190430
  Transmission Date: 20190711
  Serious: Yes (Life-Threatening, Hospitalization, Other)
  Sender: FDA-Public Use
  Company Number: KR-ACCORD-119523

PATIENT
  Age: 55 Year
  Sex: Male

DRUGS (6)
  1. ROPINIROLE/ROPINIROLE HYDROCHLORIDE [Suspect]
     Active Substance: ROPINIROLE HYDROCHLORIDE
     Indication: HAEMORRHAGE INTRACRANIAL
  2. VENLAFAXINE [Suspect]
     Active Substance: VENLAFAXINE HYDROCHLORIDE
     Indication: HAEMORRHAGE INTRACRANIAL
  3. BROMOCRIPTINE [Suspect]
     Active Substance: BROMOCRIPTINE
     Indication: HAEMORRHAGE INTRACRANIAL
  4. METHYLPHENIDATE. [Suspect]
     Active Substance: METHYLPHENIDATE
     Indication: HAEMORRHAGE INTRACRANIAL
  5. CARBIDOPA/LEVODOPA [Suspect]
     Active Substance: CARBIDOPA\LEVODOPA
     Indication: HAEMORRHAGE INTRACRANIAL
     Dosage: 75/750 MG
  6. TIANEPTINE [Suspect]
     Active Substance: TIANEPTINE
     Indication: HAEMORRHAGE INTRACRANIAL

REACTIONS (2)
  - Serotonin syndrome [Recovered/Resolved]
  - Stress cardiomyopathy [Recovered/Resolved]
